FAERS Safety Report 5455893-6 (Version None)
Quarter: 2007Q3

REPORT INFORMATION
  Report Type: 
  Country: None (occurrence: None)
  Receive Date: 20070918
  Receipt Date: 20070228
  Transmission Date: 20080115
  Serious: Yes (Other)
  Sender: FDA-Public Use
  Company Number: US-ASTRAZENECA-2006UW24338

PATIENT
  Sex: Male
  Weight: 109.1 kg

DRUGS (5)
  1. SEROQUEL [Suspect]
     Indication: INSOMNIA
     Dosage: 150 TO 600 MG
     Route: 048
     Dates: start: 20010101, end: 20050901
  2. SEROQUEL [Suspect]
     Indication: BIPOLAR DISORDER
     Dosage: 150 TO 600 MG
     Route: 048
     Dates: start: 20010101, end: 20050901
  3. ZYPREXA [Suspect]
  4. CLOZARIL [Concomitant]
  5. RISPERDAL [Concomitant]

REACTIONS (3)
  - DIABETES MELLITUS [None]
  - PANCREATITIS [None]
  - TARDIVE DYSKINESIA [None]
